FAERS Safety Report 24792576 (Version 1)
Quarter: 2024Q4

REPORT INFORMATION
  Report Type: Spontaneous
  Country: FR (occurrence: FR)
  Receive Date: 20241231
  Receipt Date: 20241231
  Transmission Date: 20250114
  Serious: Yes (Other)
  Sender: AUROBINDO
  Company Number: FR-AUROBINDO-AUR-APL-2024-059534

PATIENT
  Age: 24 Year
  Sex: Male

DRUGS (2)
  1. ALPRAZOLAM [Suspect]
     Active Substance: ALPRAZOLAM
     Indication: Insomnia
     Dosage: 1.5 MILLIGRAM, ONCE A DAY
     Route: 048
     Dates: start: 20241124
  2. ALPRAZOLAM [Suspect]
     Active Substance: ALPRAZOLAM
     Indication: Stress

REACTIONS (1)
  - Urinary retention [Not Recovered/Not Resolved]

NARRATIVE: CASE EVENT DATE: 20241124
